FAERS Safety Report 18393894 (Version 10)
Quarter: 2021Q3

REPORT INFORMATION
  Report Type: Spontaneous
  Country: PT (occurrence: PT)
  Receive Date: 20201016
  Receipt Date: 20210921
  Transmission Date: 20211014
  Serious: Yes (Hospitalization, Other)
  Sender: FDA-Public Use
  Company Number: PT-MYLANLABS-2020M1086884

PATIENT
  Age: 77 Year
  Sex: Female

DRUGS (10)
  1. NAPROXEN. [Suspect]
     Active Substance: NAPROXEN
     Indication: OSTEOARTHRITIS
  2. CELECOXIB. [Suspect]
     Active Substance: CELECOXIB
     Indication: ARTHRALGIA
  3. NAPROXEN. [Concomitant]
     Active Substance: NAPROXEN
     Dosage: UNK
     Route: 048
  4. CELECOXIB. [Suspect]
     Active Substance: CELECOXIB
     Indication: OSTEOARTHRITIS
  5. CELECOXIB. [Suspect]
     Active Substance: CELECOXIB
     Indication: PAIN
  6. NAPROXEN. [Suspect]
     Active Substance: NAPROXEN
     Indication: PAIN
  7. CELECOXIB. [Suspect]
     Active Substance: CELECOXIB
     Indication: PAIN
     Dosage: UNK
  8. IBUPROFEN. [Suspect]
     Active Substance: IBUPROFEN
     Indication: PRODUCT USED FOR UNKNOWN INDICATION
     Dosage: UNK
  9. CELECOXIB. [Suspect]
     Active Substance: CELECOXIB
     Indication: ARTHRITIS
     Dosage: UNK
     Route: 048
     Dates: start: 201909
  10. NAPROXEN. [Suspect]
     Active Substance: NAPROXEN
     Indication: ARTHRALGIA
     Dosage: UNK
     Route: 065
     Dates: start: 201909

REACTIONS (12)
  - Respiratory failure [Recovered/Resolved]
  - Pyrexia [Recovered/Resolved]
  - Leukocytosis [Recovered/Resolved]
  - Alveolitis [Recovered/Resolved]
  - Eosinophilia [Recovered/Resolved]
  - Skin disorder [Unknown]
  - Cutaneous symptom [Unknown]
  - Cough [Recovered/Resolved]
  - Drug hypersensitivity [Unknown]
  - Eosinophilic pneumonia acute [Recovered/Resolved]
  - Lung opacity [Recovered/Resolved]
  - Dyspnoea [Recovered/Resolved]

NARRATIVE: CASE EVENT DATE: 201910
